FAERS Safety Report 5533004-6 (Version None)
Quarter: 2007Q4

REPORT INFORMATION
  Report Type: 
  Country: None (occurrence: None)
  Receive Date: 20071204
  Receipt Date: 20071127
  Transmission Date: 20080405
  Serious: Yes (Other)
  Sender: FDA-Public Use
  Company Number: PHNR2007AU02129

PATIENT
  Age: 11 Year
  Sex: Male

DRUGS (3)
  1. RITALIN [Suspect]
  2. ANTIDEPRESSANTS [Concomitant]
  3. ANTIEPILEPTICS [Concomitant]

REACTIONS (2)
  - SUICIDAL IDEATION [None]
  - WEIGHT INCREASED [None]
